FAERS Safety Report 9255280 (Version 1)
Quarter: 2013Q1

REPORT INFORMATION
  Report Type: Spontaneous
  Country: US (occurrence: None)
  Receive Date: 20121212
  Receipt Date: 20121212
  Transmission Date: 20140127
  Serious: No
  Sender: FDA-Public Use
  Company Number: 1208USA011667

PATIENT
  Age: 54 Year
  Sex: Female

DRUGS (3)
  1. VICTRELIS [Suspect]
     Indication: HEPATITIS C
     Dosage: UNK
     Dates: start: 20120817
  2. REBETOL (RIBAVIRIN) CAPSULE [Suspect]
     Dosage: UNK
     Dates: start: 20120720
  3. PEGASYS (PEGINTERFERON ALFA-2A) [Concomitant]
     Dates: start: 20120720

REACTIONS (1)
  - Diarrhoea [None]
